FAERS Safety Report 16188418 (Version 8)
Quarter: 2019Q3

REPORT INFORMATION
  Report Type: Report from Study
  Country: US (occurrence: US)
  Receive Date: 20190412
  Receipt Date: 20190830
  Transmission Date: 20191004
  Serious: Yes (Other)
  Sender: FDA-Public Use
  Company Number: US-SA-2018SA260920

PATIENT
  Age: 51 Year
  Sex: Male

DRUGS (9)
  1. AMITIZA [Concomitant]
     Active Substance: LUBIPROSTONE
     Route: 065
  2. SENOKOT [Concomitant]
     Active Substance: SENNOSIDES
     Route: 065
  3. SPIRONOLACTONE. [Concomitant]
     Active Substance: SPIRONOLACTONE
     Dosage: UNK UNK, QD
     Route: 065
  4. ALEMTUZUMAB [Suspect]
     Active Substance: ALEMTUZUMAB
     Dosage: 12 MG, QD
     Route: 041
     Dates: start: 20170619, end: 20170623
  5. AMPYRA [Suspect]
     Active Substance: DALFAMPRIDINE
     Dosage: UNK
     Route: 065
     Dates: start: 2013
  6. CASTOR OIL. [Concomitant]
     Active Substance: CASTOR OIL
     Route: 065
  7. TAMSULOSIN [Concomitant]
     Active Substance: TAMSULOSIN
     Dosage: UNK, UNK
     Route: 065
  8. ACYCLOVIR [ACICLOVIR] [Concomitant]
     Active Substance: ACYCLOVIR
     Dosage: UNK, UNK
     Route: 065
  9. ALEMTUZUMAB [Suspect]
     Active Substance: ALEMTUZUMAB
     Indication: MULTIPLE SCLEROSIS
     Dosage: 12 MG, QD
     Route: 041
     Dates: start: 20180911, end: 20180913

REACTIONS (18)
  - Urinary tract disorder [Not Recovered/Not Resolved]
  - Crying [Not Recovered/Not Resolved]
  - Nasal discomfort [Not Recovered/Not Resolved]
  - Throat irritation [Not Recovered/Not Resolved]
  - Eating disorder [Not Recovered/Not Resolved]
  - Skin abrasion [Not Recovered/Not Resolved]
  - Inappropriate schedule of product administration [Unknown]
  - Fluid retention [Recovered/Resolved]
  - Blood pressure abnormal [Recovered/Resolved]
  - Decubitus ulcer [Recovering/Resolving]
  - Peripheral swelling [Unknown]
  - Cough [Recovered/Resolved]
  - Dysuria [Unknown]
  - Fall [Not Recovered/Not Resolved]
  - Urinary retention [Unknown]
  - Blood pressure increased [Unknown]
  - Urinary tract infection [Not Recovered/Not Resolved]
  - Affective disorder [Not Recovered/Not Resolved]

NARRATIVE: CASE EVENT DATE: 2018
